FAERS Safety Report 4412463-6 (Version None)
Quarter: 2004Q2

REPORT INFORMATION
  Report Type: 
  Country: None (occurrence: None)
  Receive Date: 20040630
  Receipt Date: 20040405
  Transmission Date: 20050107
  Serious: No
  Sender: FDA-Public Use
  Company Number: 04P-163-0256668-00

PATIENT
  Age: 57 Year
  Sex: Female
  Weight: 64.4108 kg

DRUGS (4)
  1. HUMIRA [Suspect]
     Indication: RHEUMATOID ARTHRITIS
     Dosage: 40 MG, 1 IN 2 WK, SUBCUTANEOUS
     Route: 058
     Dates: start: 20040319
  2. LEVOTHYROXINE SODIUM [Concomitant]
  3. DOXEPIN HCL [Concomitant]
  4. ALPRAZOLAM [Concomitant]

REACTIONS (4)
  - ANXIETY [None]
  - ARTHRALGIA [None]
  - FLUSHING [None]
  - PALPITATIONS [None]
